FAERS Safety Report 18467864 (Version 2)
Quarter: 2020Q4

REPORT INFORMATION
  Report Type: Spontaneous
  Country: US (occurrence: US)
  Receive Date: 20201105
  Receipt Date: 20201109
  Transmission Date: 20210114
  Serious: Yes (Other)
  Sender: FDA-Public Use
  Company Number: US-PFIZER INC-2020426013

PATIENT
  Age: 90 Year
  Sex: Female
  Weight: 63.49 kg

DRUGS (1)
  1. TOVIAZ [Suspect]
     Active Substance: FESOTERODINE FUMARATE
     Indication: URINARY INCONTINENCE
     Dosage: 4 MG, 1X/DAY
     Route: 048
     Dates: start: 20201007, end: 202010

REACTIONS (5)
  - Coronavirus infection [Unknown]
  - Haemorrhage [Recovered/Resolved]
  - Blood urine present [Recovered/Resolved]
  - Pneumonia [Unknown]
  - Hypoacusis [Unknown]

NARRATIVE: CASE EVENT DATE: 202010
